FAERS Safety Report 10430661 (Version 1)
Quarter: 2014Q3

REPORT INFORMATION
  Report Type: Spontaneous
  Country: US (occurrence: None)
  Receive Date: 20140903
  Receipt Date: 20140903
  Transmission Date: 20150326
  Serious: Yes (Disabling)
  Sender: FDA-Public Use
  Company Number: None

PATIENT
  Age: 61 Year
  Sex: Female
  Weight: 90.72 kg

DRUGS (1)
  1. TEMAZEPAM. [Suspect]
     Active Substance: TEMAZEPAM
     Indication: INSOMNIA
     Dosage: 1, HS, PRN, TAKEN BY MOUTH.
     Route: 048
     Dates: start: 20140630, end: 20140821

REACTIONS (3)
  - Drug ineffective [None]
  - Product quality issue [None]
  - Insomnia [None]

NARRATIVE: CASE EVENT DATE: 201408
